FAERS Safety Report 6490758-2 (Version None)
Quarter: 2009Q4

REPORT INFORMATION
  Report Type: 
  Country: None (occurrence: None)
  Receive Date: 20091211
  Receipt Date: 20091130
  Transmission Date: 20100525
  Serious: Yes (Other)
  Sender: FDA-Public Use
  Company Number: CO-ELI_LILLY_AND_COMPANY-CO200912000655

PATIENT
  Sex: Female

DRUGS (4)
  1. FORTEO [Suspect]
     Indication: OSTEOPOROSIS
     Dosage: 20 UG, DAILY (1/D)
     Route: 058
     Dates: start: 20090702, end: 20091129
  2. CALCIUM CARBONATE W/VITAMIN D /00944201/ [Concomitant]
     Indication: SUPPLEMENTATION THERAPY
     Dosage: UNK, UNKNOWN
     Route: 065
  3. LOVASTATIN [Concomitant]
     Dosage: UNK, UNKNOWN
     Route: 065
  4. VERAPAMIL [Concomitant]
     Dosage: UNK, UNKNOWN
     Route: 065

REACTIONS (6)
  - BONE PAIN [None]
  - CEREBRAL ISCHAEMIA [None]
  - DECREASED APPETITE [None]
  - DIZZINESS [None]
  - SOMNOLENCE [None]
  - WEIGHT DECREASED [None]
